FAERS Safety Report 4699527-7 (Version None)
Quarter: 2005Q2

REPORT INFORMATION
  Report Type: 
  Country: None (occurrence: None)
  Receive Date: 20050126
  Receipt Date: 20050126
  Transmission Date: 20051028
  Serious: Yes (Life-Threatening)
  Sender: FDA-Public Use
  Company Number: None

PATIENT
  Sex: Female

DRUGS (1)
  1. TEGRETOL [Suspect]

REACTIONS (5)
  - BLOOD CHLORIDE ABNORMAL [None]
  - BLOOD SODIUM ABNORMAL [None]
  - CONVULSION [None]
  - DRUG LEVEL DECREASED [None]
  - ELECTROLYTE IMBALANCE [None]
